FAERS Safety Report 14186704 (Version 4)
Quarter: 2020Q4

REPORT INFORMATION
  Report Type: Report from Study
  Country: DE (occurrence: DE)
  Receive Date: 20171114
  Receipt Date: 20201113
  Transmission Date: 20210113
  Serious: No
  Sender: FDA-Public Use
  Company Number: DE-BRISTOL-MYERS SQUIBB COMPANY-BMS-2017-012958

PATIENT
  Age: 78 Year
  Sex: Male

DRUGS (12)
  1. ASPIRIN. [Concomitant]
     Active Substance: ASPIRIN
     Indication: CEREBROVASCULAR DISORDER
  2. TRAMADOL. [Concomitant]
     Active Substance: TRAMADOL
     Indication: NEOPLASM
     Dosage: 200 MG, UNK
     Route: 065
     Dates: start: 20170106, end: 20170324
  3. PANTOPRAZOL [PANTOPRAZOLE SODIUM SESQUIHYDRATE] [Concomitant]
     Active Substance: PANTOPRAZOLE SODIUM
     Indication: GASTROINTESTINAL DISORDER
     Dosage: 20 MG, UNK
     Route: 065
     Dates: start: 20120924, end: 20170324
  4. IBEROGAST [Concomitant]
     Active Substance: HERBALS
     Indication: GASTROINTESTINAL DISORDER
     Dosage: UNK UNK, PRN
     Route: 065
     Dates: start: 20170213, end: 20170226
  5. ASPIRIN. [Concomitant]
     Active Substance: ASPIRIN
     Indication: CARDIOVASCULAR DISORDER
     Dosage: 100 MG, UNK
     Route: 065
     Dates: start: 20120906, end: 20170324
  6. KALINOR [POTASSIUM CHLORIDE] [Concomitant]
     Active Substance: POTASSIUM CHLORIDE
     Indication: PROPHYLAXIS
     Dosage: 1 DF, UNK
     Route: 065
     Dates: start: 20140303, end: 20141027
  7. FENTANYL. [Concomitant]
     Active Substance: FENTANYL
     Indication: NEOPLASM
     Dosage: 1 DF, UNK
     Route: 065
     Dates: start: 20161205, end: 20170324
  8. VOMEX A [Concomitant]
     Active Substance: DIMENHYDRINATE
     Indication: GASTROINTESTINAL DISORDER
     Dosage: UNK UNK, PRN
     Route: 065
     Dates: start: 20170227, end: 20170311
  9. NIVOLUMAB [Suspect]
     Active Substance: NIVOLUMAB
     Indication: RENAL CELL CARCINOMA
     Dosage: 3 MILLIGRAM/KILOGRAM, Q2WK
     Route: 042
     Dates: start: 20170116
  10. IBEROGAST [Concomitant]
     Active Substance: HERBALS
     Indication: NEPHROPATHY
  11. VOMEX A [Concomitant]
     Active Substance: DIMENHYDRINATE
     Indication: NEPHROPATHY
  12. ABSTRAL [Concomitant]
     Active Substance: FENTANYL CITRATE
     Indication: NEOPLASM
     Dosage: 400 ?G, UNK
     Route: 065
     Dates: start: 20161205, end: 20170324

REACTIONS (1)
  - Decreased appetite [Not Recovered/Not Resolved]

NARRATIVE: CASE EVENT DATE: 20170213
